FAERS Safety Report 17528509 (Version 1)
Quarter: 2020Q1

REPORT INFORMATION
  Report Type: Spontaneous
  Country: GB (occurrence: GB)
  Receive Date: 20200312
  Receipt Date: 20200312
  Transmission Date: 20200409
  Serious: Yes (Disabling, Other)
  Sender: FDA-Public Use
  Company Number: GB-AUROBINDO-AUR-APL-2020-011997

PATIENT
  Age: 34 Year
  Sex: Female
  Weight: 80 kg

DRUGS (3)
  1. FUSIDIC ACID [Concomitant]
     Active Substance: FUSIDIC ACID
     Indication: PRODUCT USED FOR UNKNOWN INDICATION
     Dosage: USE AS DIRECTED R/V WITH GP BEFORE FURHTER ISSUES
     Route: 065
     Dates: start: 20191023
  2. FUCIDIN [Concomitant]
     Active Substance: FUSIDATE SODIUM
     Indication: PRODUCT USED FOR UNKNOWN INDICATION
     Dosage: 2 DOSAGE FORM, ONCE A DAY
     Route: 065
     Dates: start: 20191220
  3. CLARITHROMYCIN FILM-COATED TABLET [Suspect]
     Active Substance: CLARITHROMYCIN
     Indication: PRODUCT USED FOR UNKNOWN INDICATION
     Dosage: 500 MILLIGRAM, TWO TIMES A DAY
     Route: 065
     Dates: start: 20191211

REACTIONS (3)
  - Hallucination [Recovered/Resolved]
  - Insomnia [Recovered/Resolved]
  - Nightmare [Recovered/Resolved]

NARRATIVE: CASE EVENT DATE: 20200121
